FAERS Safety Report 9791151 (Version 1)
Quarter: 2013Q4

REPORT INFORMATION
  Report Type: Report from Study
  Country: NL (occurrence: NL)
  Receive Date: 20131231
  Receipt Date: 20131231
  Transmission Date: 20140711
  Serious: Yes (Other)
  Sender: FDA-Public Use
  Company Number: NL-ABBVIE-13P-114-1183995-00

PATIENT
  Age: 51 Year
  Sex: Female

DRUGS (5)
  1. LUCRIN [Suspect]
     Indication: BREAST CANCER FEMALE
     Route: 058
     Dates: start: 20110120, end: 20130911
  2. ANASTROZOL [Concomitant]
     Indication: PRODUCT USED FOR UNKNOWN INDICATION
  3. CALCIUMCARBONATE/COLECALCIFEROL [Concomitant]
     Indication: PRODUCT USED FOR UNKNOWN INDICATION
  4. CLODRONINOZUUR [Concomitant]
     Indication: PRODUCT USED FOR UNKNOWN INDICATION
  5. OMEPRAZOL [Concomitant]
     Indication: PRODUCT USED FOR UNKNOWN INDICATION
     Dosage: EC

REACTIONS (1)
  - Chemotherapy [Not Recovered/Not Resolved]
